FAERS Safety Report 8965079 (Version 1)
Quarter: 2012Q4

REPORT INFORMATION
  Report Type: 
  Country: US (occurrence: US)
  Receive Date: 20121213
  Receipt Date: 20121213
  Transmission Date: 20130627
  Serious: No
  Sender: FDA-Public Use
  Company Number: US-BRISTOL-MYERS SQUIBB COMPANY-16508152

PATIENT
  Age: 74 Year
  Sex: Male
  Weight: 95.24 kg

DRUGS (2)
  1. PRAVACHOL [Suspect]
  2. TRICOR [Concomitant]

REACTIONS (1)
  - Myalgia [Unknown]
